FAERS Safety Report 14413118 (Version 1)
Quarter: 2018Q1

REPORT INFORMATION
  Report Type: Spontaneous
  Country: US (occurrence: US)
  Receive Date: 20180119
  Receipt Date: 20180119
  Transmission Date: 20180509
  Serious: Yes (Hospitalization)
  Sender: FDA-Public Use
  Company Number: None

PATIENT
  Age: 85 Year
  Sex: Female
  Weight: 84.2 kg

DRUGS (8)
  1. VISIPAQUE [Concomitant]
     Active Substance: IODIXANOL
  2. TRICOR [Concomitant]
     Active Substance: FENOFIBRATE
  3. OXYCODONE [Suspect]
     Active Substance: OXYCODONE
     Indication: PAIN
     Dosage: DATES OF USE - RECENT  11-23 BEFORE DISCHARGE
     Route: 048
  4. FENTANYL. [Concomitant]
     Active Substance: FENTANYL
  5. SYNTHROID [Concomitant]
     Active Substance: LEVOTHYROXINE SODIUM
  6. LIDOCAINE. [Concomitant]
     Active Substance: LIDOCAINE
  7. HYDROMORPHONE [Suspect]
     Active Substance: HYDROMORPHONE
     Indication: PAIN
     Dosage: DATES OF USE - RECENT 11-23 BEFORE DISCHARGE
     Route: 042
  8. ONDANSETRON [Concomitant]
     Active Substance: ONDANSETRON

REACTIONS (3)
  - Syncope [None]
  - Pulmonary embolism [None]
  - Unresponsive to stimuli [None]

NARRATIVE: CASE EVENT DATE: 20171123
